FAERS Safety Report 5326831-1 (Version None)
Quarter: 2007Q2

REPORT INFORMATION
  Report Type: 
  Country: None (occurrence: None)
  Receive Date: 20070516
  Receipt Date: 20070501
  Transmission Date: 20071010
  Serious: Yes (Other)
  Sender: FDA-Public Use
  Company Number: US-GENENTECH-241463

PATIENT

DRUGS (4)
  1. BEVACIZUMAB [Suspect]
     Indication: NON-SMALL CELL LUNG CANCER
     Dosage: 15 MG/KG, UNK
     Route: 042
  2. CARBOPLATIN [Suspect]
     Indication: NON-SMALL CELL LUNG CANCER
     Dosage: 6 MG/ML, UNK
     Route: 042
  3. TAXOL [Suspect]
     Indication: NON-SMALL CELL LUNG CANCER
     Dosage: 200 MG/M2, UNK
     Route: 042
  4. RADIATION THERAPY [Concomitant]
     Indication: NON-SMALL CELL LUNG CANCER
     Dosage: 30 GY, UNK
     Dates: start: 20061122

REACTIONS (1)
  - LYMPHOPENIA [None]
